FAERS Safety Report 5423344-3 (Version None)
Quarter: 2007Q3

REPORT INFORMATION
  Report Type: 
  Country: None (occurrence: None)
  Receive Date: 20070730
  Receipt Date: 20070228
  Transmission Date: 20080115
  Serious: Yes (Other)
  Sender: FDA-Public Use
  Company Number: 200710393BWH

PATIENT
  Age: 46 Year
  Sex: Female
  Weight: 68.4932 kg

DRUGS (1)
  1. AVELOX [Suspect]
     Dosage: 400 MG, ONCE, ORAL
     Route: 048
     Dates: start: 20070115

REACTIONS (6)
  - ABDOMINAL PAIN [None]
  - ANAPHYLACTIC SHOCK [None]
  - BLOOD PRESSURE DECREASED [None]
  - DIARRHOEA [None]
  - PRURITUS [None]
  - VOMITING [None]
